FAERS Safety Report 4825924-2 (Version None)
Quarter: 2005Q4

REPORT INFORMATION
  Report Type: 
  Country: None (occurrence: None)
  Receive Date: 20051111
  Receipt Date: 20051109
  Transmission Date: 20060501
  Serious: Yes (Other)
  Sender: FDA-Public Use
  Company Number: US-JNJFOC-20050906500

PATIENT
  Sex: Male

DRUGS (1)
  1. LEVAQUIN [Suspect]
     Route: 048
     Dates: start: 20050914, end: 20050923

REACTIONS (1)
  - PAPILLOEDEMA [None]
